FAERS Safety Report 8295616-9 (Version None)
Quarter: 2012Q2

REPORT INFORMATION
  Report Type: 
  Country: None (occurrence: None)
  Receive Date: 20120416
  Receipt Date: 20120401
  Transmission Date: 20120825
  Serious: Yes (Death)
  Sender: FDA-Public Use
  Company Number: 2012-167

PATIENT
  Age: 34 Year
  Sex: Male

DRUGS (8)
  1. SERTRALINE HYDROCHLORIDE [Concomitant]
  2. BECONASE [Concomitant]
  3. ALBUTEROL SULFATE [Concomitant]
  4. OLANZAPINE [Concomitant]
  5. CLOZAPINE [Suspect]
     Dosage: 350 MG, ONCE
  6. OMEPRAZOLE [Concomitant]
  7. FERROUS SULFATE TAB [Concomitant]
  8. CHLORHEXIDINE GLUCONATE [Concomitant]

REACTIONS (8)
  - PULMONARY OEDEMA [None]
  - CARDIOPULMONARY FAILURE [None]
  - LEFT VENTRICULAR HYPERTROPHY [None]
  - HEPATOMEGALY [None]
  - INTENTIONAL DRUG MISUSE [None]
  - HEPATIC STEATOSIS [None]
  - PULMONARY CONGESTION [None]
  - ARTERIOSCLEROSIS CORONARY ARTERY [None]
